FAERS Safety Report 14911908 (Version 2)
Quarter: 2019Q4

REPORT INFORMATION
  Report Type: Spontaneous
  Country: DE (occurrence: DE)
  Receive Date: 20180518
  Receipt Date: 20191217
  Transmission Date: 20200122
  Serious: Yes (Other)
  Sender: FDA-Public Use
  Company Number: DE-TEVA-2018-DE-892042

PATIENT
  Age: 1 Day
  Sex: Male
  Weight: 2.5 kg

DRUGS (7)
  1. FAMENITA [Concomitant]
     Active Substance: PROGESTERONE
     Dosage: 200 MILLIGRAM DAILY;
     Route: 064
  2. MENOGON [Concomitant]
     Active Substance: MENOTROPINS
     Route: 064
  3. FOLIO FORTE [Concomitant]
     Active Substance: FOLIC ACID\VITAMINS
     Route: 064
  4. HUMALOG 100 [Concomitant]
     Route: 064
  5. BISOPROLOL [Suspect]
     Active Substance: BISOPROLOL
     Dosage: 5 [MG/D ]/ INITIAL 5MG/D, DOSAGE REDUCTION FROM WEEK 13+3 TO 2.5MG/D
     Route: 064
     Dates: start: 20170205, end: 20171113
  6. METFORMIN [Concomitant]
     Active Substance: METFORMIN HYDROCHLORIDE
     Dosage: 1100 [MG/D ]/ 0-250-850 MG/D
     Route: 064
  7. METHYLDOPA 250 MG [Suspect]
     Active Substance: METHYLDOPA
     Dosage: 1000 [MG/D ]/ INITIAL 500MG/D, SLOW DOSAGE INCREASE TO 1000MG/D
     Route: 064
     Dates: start: 20170205, end: 20171113

REACTIONS (2)
  - Maternal exposure during pregnancy [Unknown]
  - Small for dates baby [Recovered/Resolved]

NARRATIVE: CASE EVENT DATE: 20171113
